FAERS Safety Report 4788070-2 (Version None)
Quarter: 2005Q4

REPORT INFORMATION
  Report Type: 
  Country: None (occurrence: None)
  Receive Date: 20051004
  Receipt Date: 20051004
  Transmission Date: 20060501
  Serious: Yes (Other)
  Sender: FDA-Public Use
  Company Number: None

PATIENT
  Age: 44 Year
  Sex: Female
  Weight: 69.4003 kg

DRUGS (5)
  1. COMMIT [Suspect]
     Indication: TOBACCO ABUSE
     Dosage: 4 MG 6 LOZENGES PO
     Route: 048
     Dates: start: 20050622, end: 20050623
  2. ATENOLOL [Concomitant]
  3. MAXZIDE [Concomitant]
  4. QUININE SULFATE [Concomitant]
  5. PROTONIX [Concomitant]

REACTIONS (2)
  - RASH ERYTHEMATOUS [None]
  - RASH PRURITIC [None]
